FAERS Safety Report 14212460 (Version 1)
Quarter: 2017Q4

REPORT INFORMATION
  Report Type: Spontaneous
  Country: US (occurrence: None)
  Receive Date: 20171121
  Receipt Date: 20171121
  Transmission Date: 20180321
  Serious: No
  Sender: FDA-Public Use
  Company Number: None

PATIENT
  Age: 70 Year
  Sex: Male

DRUGS (2)
  1. IMATINIB MES [Suspect]
     Active Substance: IMATINIB MESYLATE
     Indication: CHRONIC MYELOID LEUKAEMIA
     Route: 048
     Dates: start: 20160409
  2. IMATINIB MES [Suspect]
     Active Substance: IMATINIB MESYLATE
     Indication: CHROMOSOME BANDING ABNORMAL
     Route: 048
     Dates: start: 20160409

REACTIONS (3)
  - Diarrhoea [None]
  - Feeling abnormal [None]
  - Therapy change [None]

NARRATIVE: CASE EVENT DATE: 20170921
